FAERS Safety Report 6702240-5 (Version None)
Quarter: 2010Q2

REPORT INFORMATION
  Report Type: 
  Country: None (occurrence: None)
  Receive Date: 20100429
  Receipt Date: 20100423
  Transmission Date: 20101027
  Serious: Yes (Hospitalization)
  Sender: FDA-Public Use
  Company Number: JP-MERCK-1004USA04007

PATIENT
  Age: 39 Year
  Sex: Male

DRUGS (5)
  1. JANUVIA [Suspect]
     Indication: TYPE 2 DIABETES MELLITUS
     Route: 048
     Dates: start: 20100101, end: 20100302
  2. AMLODIPINE BESYLATE [Concomitant]
     Route: 065
     Dates: start: 20091201, end: 20100302
  3. TAKEPRON [Concomitant]
     Route: 065
     Dates: start: 20091224, end: 20100302
  4. ACTOS [Concomitant]
     Route: 065
     Dates: start: 20091201, end: 20100302
  5. AMARYL [Concomitant]
     Route: 065
     Dates: start: 20091201, end: 20100302

REACTIONS (1)
  - DRUG ERUPTION [None]
